FAERS Safety Report 5329716-X (Version None)
Quarter: 2007Q2

REPORT INFORMATION
  Report Type: 
  Country: None (occurrence: None)
  Receive Date: 20070521
  Receipt Date: 20070509
  Transmission Date: 20071010
  Serious: Yes (Hospitalization)
  Sender: FDA-Public Use
  Company Number: JP-NOVOPROD-263056

PATIENT
  Age: 69 Year
  Sex: Male

DRUGS (5)
  1. GLUCAGON [Suspect]
     Indication: DRUG USE FOR UNKNOWN INDICATION
     Dosage: 1 MG, UNK
     Route: 030
     Dates: start: 20070418, end: 20070418
  2. SOLON [Concomitant]
     Indication: GASTRITIS
     Route: 048
     Dates: start: 20070105
  3. PERAPRIN [Concomitant]
     Indication: GASTRITIS
     Route: 048
  4. FLIVAS [Concomitant]
     Indication: BENIGN PROSTATIC HYPERPLASIA
     Route: 048
     Dates: start: 20070501
  5. LENDORMIN [Concomitant]
     Route: 048
     Dates: start: 20070501

REACTIONS (3)
  - DIZZINESS [None]
  - HYPOTENSION [None]
  - PULSE ABNORMAL [None]
